FAERS Safety Report 9021927 (Version 2)
Quarter: 2014Q4

REPORT INFORMATION
  Report Type: Spontaneous
  Country: CA (occurrence: CA)
  Receive Date: 20130118
  Receipt Date: 20141015
  Transmission Date: 20150529
  Serious: Yes (Other)
  Sender: FDA-Public Use
  Company Number: CA-JNJFOC-20130105641

PATIENT
  Sex: Male

DRUGS (2)
  1. NICORETTE [Suspect]
     Active Substance: NICOTINE
     Indication: SMOKING CESSATION THERAPY
     Dosage: 1 BOX PER WEEK
     Route: 048
  2. NICORETTE [Suspect]
     Active Substance: NICOTINE
     Indication: SMOKING CESSATION THERAPY
     Route: 048

REACTIONS (7)
  - Nicotine dependence [Unknown]
  - Increased upper airway secretion [Unknown]
  - Feeling abnormal [Unknown]
  - Malaise [Unknown]
  - Incorrect drug administration duration [Unknown]
  - Influenza [Unknown]
  - Withdrawal syndrome [Unknown]
